FAERS Safety Report 10184955 (Version 1)
Quarter: 2014Q2

REPORT INFORMATION
  Report Type: Spontaneous
  Country: US (occurrence: None)
  Receive Date: 20140520
  Receipt Date: 20140520
  Transmission Date: 20141212
  Serious: Yes (Hospitalization)
  Sender: FDA-Public Use
  Company Number: None

PATIENT
  Age: 70 Year
  Sex: Female

DRUGS (8)
  1. VANCOMYCIN [Suspect]
     Indication: SURGERY
     Dosage: 1 GRAM ONCE IV
     Route: 042
     Dates: start: 20120821, end: 20120821
  2. AMLODIPINE [Concomitant]
  3. ASPIRIN [Concomitant]
  4. CLONIDINE [Concomitant]
  5. INSULIN [Concomitant]
  6. NADOLOL [Concomitant]
  7. CYCLOSPORINE [Concomitant]
  8. CALCIUM ACETATE [Concomitant]

REACTIONS (5)
  - General physical health deterioration [None]
  - Blood pressure decreased [None]
  - Hypoxia [None]
  - Metabolic acidosis [None]
  - Procedural complication [None]
